FAERS Safety Report 10048359 (Version 1)
Quarter: 2014Q1

REPORT INFORMATION
  Report Type: Spontaneous
  Country: GB (occurrence: GB)
  Receive Date: 20140331
  Receipt Date: 20140331
  Transmission Date: 20141002
  Serious: Yes (Hospitalization)
  Sender: FDA-Public Use
  Company Number: GB-VIIV HEALTHCARE LIMITED-B0979822A

PATIENT
  Age: 29 Year
  Sex: Male
  Weight: 66.8 kg

DRUGS (2)
  1. KIVEXA [Suspect]
     Indication: RETROVIRAL INFECTION
     Dosage: 1IUAX PER DAY
     Route: 048
     Dates: start: 20140224, end: 20140306
  2. EFAVIRENZ [Suspect]
     Indication: RETROVIRAL INFECTION
     Dosage: 1IUAX PER DAY
     Route: 048
     Dates: start: 20140224, end: 20140305

REACTIONS (3)
  - Hypersensitivity [Recovering/Resolving]
  - Influenza like illness [Recovering/Resolving]
  - Rash [Recovering/Resolving]
